FAERS Safety Report 9298976 (Version 1)
Quarter: 2013Q2

REPORT INFORMATION
  Report Type: Spontaneous
  Country: US (occurrence: US)
  Receive Date: 20130520
  Receipt Date: 20130520
  Transmission Date: 20140414
  Serious: No
  Sender: FDA-Public Use
  Company Number: US-SANOFI-AVENTIS-2013SA013085

PATIENT
  Age: 62 Year
  Sex: Male

DRUGS (6)
  1. APIDRA SOLOSTAR [Suspect]
     Indication: TYPE 2 DIABETES MELLITUS
     Dosage: TODAY(8-FEB-2013) FOR EXAMPLE HE TOOK 13 UNITS THIS MORNING AND 19 AT LUNCH
     Route: 058
  2. SOLOSTAR [Suspect]
     Indication: TYPE 2 DIABETES MELLITUS
  3. APIDRA [Suspect]
     Route: 058
  4. ALL OTHER THERAPEUTIC PRODUCTS [Suspect]
     Dates: start: 201211
  5. VITAMINS [Concomitant]
  6. MINERALS NOS [Concomitant]

REACTIONS (4)
  - Visual impairment [Unknown]
  - Hypoacusis [Unknown]
  - Blood glucose increased [Unknown]
  - Therapeutic response decreased [Unknown]
